FAERS Safety Report 7997963-4 (Version None)
Quarter: 2011Q4

REPORT INFORMATION
  Report Type: 
  Country: None (occurrence: None)
  Receive Date: 20111221
  Receipt Date: 20111216
  Transmission Date: 20120403
  Serious: Yes (Life-Threatening, Hospitalization, Other)
  Sender: FDA-Public Use
  Company Number: PHHY2011HU95948

PATIENT
  Age: 18 Year
  Sex: Male

DRUGS (4)
  1. CLOZAPINE [Suspect]
     Dosage: 225 MG PER DAY
     Dates: start: 20091001
  2. PROPOFOL [Concomitant]
     Dosage: (UP TO 6000 MG/DAY
  3. MIDAZOLAM [Suspect]
     Dosage: UPTO 500 MG / DAY
  4. CLONAZEPAM [Suspect]

REACTIONS (7)
  - DYSKINESIA [None]
  - BLOOD CREATININE INCREASED [None]
  - INTENTIONAL SELF-INJURY [None]
  - SLEEP DISORDER [None]
  - PAIN [None]
  - TACHYCARDIA [None]
  - DYSTONIA [None]
